FAERS Safety Report 7209892-4 (Version None)
Quarter: 2011Q1

REPORT INFORMATION
  Report Type: 
  Country: None (occurrence: None)
  Receive Date: 20110105
  Receipt Date: 20101223
  Transmission Date: 20110831
  Serious: Yes (Hospitalization)
  Sender: FDA-Public Use
  Company Number: CA-BIOGENIDEC-2010BI043458

PATIENT
  Age: 42 Year
  Sex: Female

DRUGS (5)
  1. TYSABRI [Suspect]
     Indication: RELAPSING-REMITTING MULTIPLE SCLEROSIS
     Route: 042
     Dates: start: 20090921
  2. ASCORBIC ACID [Concomitant]
  3. OXYBUTYNIN [Concomitant]
  4. CELEXA [Concomitant]
  5. TOPAMAX [Concomitant]

REACTIONS (1)
  - MULTIPLE SCLEROSIS [None]
